FAERS Safety Report 14206325 (Version 1)
Quarter: 2017Q4

REPORT INFORMATION
  Report Type: Spontaneous
  Country: SA (occurrence: SA)
  Receive Date: 20171120
  Receipt Date: 20171120
  Transmission Date: 20180321
  Serious: Yes (Other)
  Sender: FDA-Public Use
  Company Number: SA-ABBVIE-17K-259-2168513-00

PATIENT
  Age: 20 Year
  Sex: Female

DRUGS (2)
  1. HUMIRA [Suspect]
     Active Substance: ADALIMUMAB
     Dosage: ONCE AT WEEK 2 AND 4
     Route: 058
  2. HUMIRA [Suspect]
     Active Substance: ADALIMUMAB
     Indication: PSORIASIS
     Dosage: TWO SYRINGES AT WEEK ONE
     Route: 058

REACTIONS (3)
  - Drug ineffective [Unknown]
  - Back pain [Unknown]
  - Lymphoma [Unknown]
